FAERS Safety Report 9783992 (Version 4)
Quarter: 2014Q1

REPORT INFORMATION
  Report Type: Spontaneous
  Country: BR (occurrence: BR)
  Receive Date: 20131226
  Receipt Date: 20140117
  Transmission Date: 20141002
  Serious: Yes (Other)
  Sender: FDA-Public Use
  Company Number: BR-PFIZER INC-2013364617

PATIENT
  Age: 58 Year
  Sex: Female
  Weight: 92 kg

DRUGS (2)
  1. ATORVASTATINA CALCICA TEUTO [Suspect]
     Dosage: 20 MG, DAILY AFTER DINNER
     Dates: start: 20131101, end: 20131130
  2. ATORVASTATINA CALCICA TEUTO [Suspect]
     Dosage: UNK
     Dates: start: 20140101, end: 20140103

REACTIONS (7)
  - Cystitis [Recovered/Resolved]
  - Dizziness [Unknown]
  - Muscle spasms [Unknown]
  - Dysuria [Unknown]
  - Dysuria [Recovered/Resolved]
  - Urine abnormality [Recovered/Resolved]
  - Hypersensitivity [Recovered/Resolved]
